FAERS Safety Report 7113802-8 (Version None)
Quarter: 2010Q4

REPORT INFORMATION
  Report Type: 
  Country: None (occurrence: None)
  Receive Date: 20101119
  Receipt Date: 20101116
  Transmission Date: 20110411
  Serious: Yes (Death, Hospitalization)
  Sender: FDA-Public Use
  Company Number: BR-ACTELION-A-CH2010-41303

PATIENT
  Sex: Female
  Weight: 59 kg

DRUGS (5)
  1. BOSENTAN TABLET 125 MG ROW [Suspect]
     Indication: SKIN ULCER
     Dosage: 125 MG, BID
     Route: 048
  2. BOSENTAN TABLET 125 MG ROW [Suspect]
     Indication: PULMONARY ARTERIAL HYPERTENSION
     Dosage: 62.5 MG, BID
     Route: 048
     Dates: start: 20090101
  3. NIFEDIPINE [Concomitant]
  4. CAPTOPRIL [Concomitant]
  5. PENTOXIFYLLINE [Concomitant]

REACTIONS (5)
  - ABDOMINAL INFECTION [None]
  - ENDOTRACHEAL INTUBATION [None]
  - HEPATIC INFECTION [None]
  - ORGAN FAILURE [None]
  - SEPSIS [None]
